FAERS Safety Report 4884090-8 (Version None)
Quarter: 2006Q1

REPORT INFORMATION
  Report Type: 
  Country: None (occurrence: None)
  Receive Date: 20060118
  Receipt Date: 20050816
  Transmission Date: 20060701
  Serious: Yes (Hospitalization)
  Sender: FDA-Public Use
  Company Number: US-MERCK-0508USA03064

PATIENT
  Age: 74 Year
  Sex: Female
  Weight: 58 kg

DRUGS (7)
  1. VIOXX [Suspect]
     Indication: ARTHRALGIA
     Route: 048
     Dates: start: 19980101, end: 20040101
  2. ASPIRIN [Concomitant]
     Route: 065
  3. PRILOSEC [Concomitant]
     Route: 065
  4. TRICOR [Concomitant]
     Route: 065
  5. PRAVACHOL [Concomitant]
     Route: 065
  6. CARDIZEM [Concomitant]
     Route: 065
  7. PREMARIN [Concomitant]
     Route: 065

REACTIONS (17)
  - ACUTE MYOCARDIAL INFARCTION [None]
  - ARTHRALGIA [None]
  - BLOOD CREATININE INCREASED [None]
  - CAROTID ARTERY THROMBOSIS [None]
  - CEREBRAL INFARCTION [None]
  - CORONARY ARTERY DISEASE [None]
  - DRY MOUTH [None]
  - EMBOLIC CEREBRAL INFARCTION [None]
  - EYE DISORDER [None]
  - FACET JOINT SYNDROME [None]
  - INTERVERTEBRAL DISC DEGENERATION [None]
  - METRORRHAGIA [None]
  - OSTEOARTHRITIS [None]
  - RESTLESS LEGS SYNDROME [None]
  - SHOULDER PAIN [None]
  - STRESS INCONTINENCE [None]
  - VAGINAL REMOVAL OF INTRAUTERINE FOREIGN BODY [None]
